FAERS Safety Report 23666963 (Version 1)
Quarter: 2024Q1

REPORT INFORMATION
  Report Type: Spontaneous
  Country: AU (occurrence: AU)
  Receive Date: 20240325
  Receipt Date: 20240325
  Transmission Date: 20240410
  Serious: Yes (Other)
  Sender: FDA-Public Use
  Company Number: AU-AMGEN-AUSSP2024056026

PATIENT
  Age: 59 Year
  Sex: Male

DRUGS (6)
  1. REPATHA [Suspect]
     Active Substance: EVOLOCUMAB
     Indication: Blood cholesterol abnormal
     Dosage: 420 MILLIGRAM/3.5 ML, QMO
     Route: 058
  2. Amcal [Concomitant]
  3. AVAPRO [Concomitant]
     Active Substance: IRBESARTAN
  4. CORDILOX [Concomitant]
     Dosage: 240 MILLIGRAM
  5. EMPAGLIFLOZIN\METFORMIN HYDROCHLORIDE [Concomitant]
     Active Substance: EMPAGLIFLOZIN\METFORMIN HYDROCHLORIDE
  6. OZEMPIC [Concomitant]
     Active Substance: SEMAGLUTIDE
     Dosage: 1 MILLIGRAM

REACTIONS (4)
  - Umbilical hernia [Unknown]
  - Drug dose omission by device [Unknown]
  - Product communication issue [Unknown]
  - Device use error [Unknown]

NARRATIVE: CASE EVENT DATE: 20240316
